FAERS Safety Report 9975974 (Version 5)
Quarter: 2014Q2

REPORT INFORMATION
  Report Type: Spontaneous
  Country: US (occurrence: US)
  Receive Date: 20140306
  Receipt Date: 20140523
  Transmission Date: 20141212
  Serious: No
  Sender: FDA-Public Use
  Company Number: US-PFIZER INC-2014063570

PATIENT
  Age: 50 Year
  Sex: Female

DRUGS (4)
  1. CELEBREX [Suspect]
     Indication: OSTEOARTHRITIS
     Dosage: 200 MG, DAILY
     Route: 048
     Dates: start: 20120220, end: 20130408
  2. TRAMADOL HYDROCHLORIDE [Suspect]
     Dosage: UNK
  3. PYRIDIUM [Suspect]
     Dosage: UNK
  4. BACTRIM [Suspect]

REACTIONS (1)
  - Drug hypersensitivity [Unknown]
